FAERS Safety Report 7191259-9 (Version None)
Quarter: 2010Q4

REPORT INFORMATION
  Report Type: 
  Country: None (occurrence: None)
  Receive Date: 20101221
  Receipt Date: 20101221
  Transmission Date: 20110411
  Serious: No
  Sender: FDA-Public Use
  Company Number: None

PATIENT
  Age: 65 Year
  Sex: Female
  Weight: 102.9665 kg

DRUGS (1)
  1. OMEPRAZOLE [Suspect]
     Dosage: 20MG ONE
     Dates: start: 20101127

REACTIONS (1)
  - NAUSEA [None]
